FAERS Safety Report 17959892 (Version 2)
Quarter: 2020Q3

REPORT INFORMATION
  Report Type: Spontaneous
  Country: US (occurrence: US)
  Receive Date: 20200629
  Receipt Date: 20200720
  Transmission Date: 20201103
  Serious: No
  Sender: FDA-Public Use
  Company Number: US-BAUSCH-BL-2020-017312

PATIENT
  Sex: Female

DRUGS (1)
  1. SULFACETAMIDE SODIUM AND PREDNISOLONE SODIUM PHOSPHATE OPHTHALMIC SOLN [Suspect]
     Active Substance: PREDNISOLONE SODIUM PHOSPHATE\SULFACETAMIDE SODIUM
     Indication: PRODUCT USED FOR UNKNOWN INDICATION
     Dosage: OPENED THIS BOTTLE LAST YEAR
     Route: 065
     Dates: start: 2019

REACTIONS (1)
  - Eye pain [Recovered/Resolved]
